FAERS Safety Report 9521710 (Version 1)
Quarter: 2013Q1

REPORT INFORMATION
  Report Type: Spontaneous
  Country: US (occurrence: None)
  Receive Date: 20130305
  Receipt Date: 20130305
  Transmission Date: 20140127
  Serious: Yes (Hospitalization)
  Sender: FDA-Public Use
  Company Number: 163-21880-12072831

PATIENT
  Age: 54 Year
  Sex: Female

DRUGS (13)
  1. REVLIMID (LENALIDOMIDE) (CAPSULES) [Suspect]
     Indication: PLASMA CELL MYELOMA
     Route: 048
     Dates: start: 201206
  2. LORAZEPAM (LORAZEPAM) (UNKNOWN) [Concomitant]
  3. DEXAMETHASONE (DEXAMETHASONE)  (UNKNOWN) [Concomitant]
  4. PREDNISONE (PREDNISONE) (UNKNOWN) [Concomitant]
  5. LOVENOX (HEPARIN-FRACTION, SODIUM SALT) (UNKNOWN) [Concomitant]
  6. LISINOPRIL (LISINOPRIL) (UNKNOWN) [Concomitant]
  7. TRIMETHOPRIM (TRIMETHOPRIM) (UNKNOWN) [Concomitant]
  8. SIMVASTATIN [Concomitant]
  9. ACYCLOVIR (ACICLOVIR) (UNKNOWN) [Concomitant]
  10. ACETAMIN (PARACETAMOL) (UNKNOWN) [Concomitant]
  11. OXYCODONE (OXYCODONE) (UNKNOWN) (OXYCODONE) [Concomitant]
  12. POTASSIUM (POTASSIUM) (UNKNOWN) [Concomitant]
  13. MAGNESIUM OXIDE (MAGNESIUM OXIDE) (UNKNOWN) [Concomitant]

REACTIONS (1)
  - Pyrexia [None]
